FAERS Safety Report 20200291 (Version 1)
Quarter: 2021Q4

REPORT INFORMATION
  Report Type: Spontaneous
  Country: US (occurrence: US)
  Receive Date: 20211217
  Receipt Date: 20211217
  Transmission Date: 20220303
  Serious: No
  Sender: FDA-Public Use
  Company Number: US-PERRIGO-21US002150

PATIENT
  Age: 67 Year
  Sex: Male

DRUGS (3)
  1. MUPIROCIN [Suspect]
     Active Substance: MUPIROCIN
     Indication: Lip dry
     Dosage: UNKNOWN, SINGLE
     Route: 048
     Dates: start: 20210209, end: 20210209
  2. MUPIROCIN [Suspect]
     Active Substance: MUPIROCIN
     Indication: Nasal dryness
     Dosage: UNKNOWN, SINGLE
     Route: 061
     Dates: start: 20210209, end: 20210209
  3. MUPIROCIN [Suspect]
     Active Substance: MUPIROCIN
     Indication: Epistaxis
     Dosage: UNKNOWN, NIGHTLY
     Route: 045
     Dates: start: 20200417, end: 20200423

REACTIONS (5)
  - Dehydration [Not Recovered/Not Resolved]
  - Dry mouth [Not Recovered/Not Resolved]
  - Accidental exposure to product [Recovered/Resolved]
  - Product administered at inappropriate site [Recovered/Resolved]
  - Off label use [Recovered/Resolved]

NARRATIVE: CASE EVENT DATE: 20200417
